FAERS Safety Report 13584483 (Version 6)
Quarter: 2018Q2

REPORT INFORMATION
  Report Type: Report from Study
  Country: CN (occurrence: CN)
  Receive Date: 20170526
  Receipt Date: 20180628
  Transmission Date: 20180711
  Serious: Yes (Hospitalization, Other)
  Sender: FDA-Public Use
  Company Number: PHHY2017CN073396

PATIENT
  Age: 61 Year
  Sex: Female
  Weight: 62.5 kg

DRUGS (9)
  1. PEMETREXED DISODIUM [Concomitant]
     Active Substance: PEMETREXED DISODIUM
     Dosage: 0.8 G, QD
     Route: 042
     Dates: start: 20171014, end: 20171015
  2. XELODA [Concomitant]
     Active Substance: CAPECITABINE
     Indication: BREAST CANCER METASTATIC
     Dosage: 3 DF, BID (STOPPED TAKING XELODA FOR ONE WEEK AFTER TAKING THIS DRUG FOR 3 WEEKS EVERY TIME)
     Route: 065
  3. TYKERB [Suspect]
     Active Substance: LAPATINIB DITOSYLATE
     Indication: BREAST CANCER METASTATIC
     Dosage: 1250 MG, QD
     Route: 048
     Dates: start: 20170320
  4. MECOBALAMIN [Concomitant]
     Active Substance: METHYLCOBALAMIN
     Indication: PRODUCT USED FOR UNKNOWN INDICATION
     Dosage: 1000 UG, QD
     Route: 065
     Dates: start: 20170922, end: 20170922
  5. RUI BAI [Concomitant]
     Indication: LEUKOPENIA
     Dosage: 200 UG, QD
     Route: 050
     Dates: start: 20170920, end: 20170920
  6. PEMETREXED DISODIUM [Concomitant]
     Active Substance: PEMETREXED DISODIUM
     Indication: BREAST CANCER
     Dosage: 0.8 G, QD
     Route: 042
     Dates: start: 20170921, end: 20170923
  7. URSOFALK [Concomitant]
     Active Substance: URSODIOL
     Indication: TRANSAMINASES INCREASED
     Dosage: 1 DF, QD
     Route: 048
     Dates: start: 20170922
  8. HERCEPTIN [Concomitant]
     Active Substance: TRASTUZUMAB
     Indication: BREAST CANCER METASTATIC
     Dosage: 400 MG (6 MG/KG), FOR 21 DAYS
     Route: 042
     Dates: start: 201512
  9. LIBI [Concomitant]
     Indication: NAUSEA
     Dosage: 100 MG, QD
     Route: 042
     Dates: start: 20170922, end: 20170923

REACTIONS (13)
  - Malignant neoplasm progression [Unknown]
  - White blood cell count decreased [Recovered/Resolved]
  - Diarrhoea [Recovering/Resolving]
  - Mouth ulceration [Not Recovered/Not Resolved]
  - Pruritus [Recovered/Resolved]
  - Tricuspid valve incompetence [Not Recovered/Not Resolved]
  - Otorrhoea [Recovered/Resolved]
  - Nausea [Recovered/Resolved]
  - Mental disorder [Recovering/Resolving]
  - Aspartate aminotransferase increased [Recovered/Resolved]
  - Breast cancer [Unknown]
  - Metastases to central nervous system [Unknown]
  - Decreased appetite [Recovered/Resolved]

NARRATIVE: CASE EVENT DATE: 2017
